FAERS Safety Report 8024859-4 (Version None)
Quarter: 2012Q1

REPORT INFORMATION
  Report Type: 
  Country: None (occurrence: None)
  Receive Date: 20120105
  Receipt Date: 20120102
  Transmission Date: 20120608
  Serious: Yes (Death)
  Sender: FDA-Public Use
  Company Number: FR-BRISTOL-MYERS SQUIBB COMPANY-16325755

PATIENT
  Age: 63 Year
  Sex: Female

DRUGS (4)
  1. CYTARABINE [Suspect]
     Indication: LYMPHOMA
     Dosage: CYTARABINE SANDOZ
     Dates: start: 20110715, end: 20110718
  2. ALKERAN [Suspect]
     Indication: LYMPHOMA
     Dates: start: 20110719
  3. BICNU [Suspect]
     Indication: LYMPHOMA
     Route: 042
     Dates: start: 20110715
  4. ETOPOSIDE [Suspect]
     Indication: LYMPHOMA
     Dates: start: 20110715, end: 20110718

REACTIONS (3)
  - INTESTINAL OBSTRUCTION [None]
  - MULTI-ORGAN FAILURE [None]
  - ALTERED STATE OF CONSCIOUSNESS [None]
